FAERS Safety Report 14991617 (Version 1)
Quarter: 2018Q2

REPORT INFORMATION
  Report Type: Spontaneous
  Country: DE (occurrence: DE)
  Receive Date: 20180608
  Receipt Date: 20180608
  Transmission Date: 20180711
  Serious: Yes (Hospitalization)
  Sender: FDA-Public Use
  Company Number: DE-TEVA-2018-DE-903865

PATIENT
  Age: 69 Year
  Sex: Female

DRUGS (5)
  1. MCP [Concomitant]
     Active Substance: METOCLOPRAMIDE HYDROCHLORIDE
     Dosage: 1-1-1-0
  2. PACLITAXEL. [Suspect]
     Active Substance: PACLITAXEL
     Dosage: NK
     Route: 065
  3. OMEPRAZOL [Concomitant]
     Active Substance: OMEPRAZOLE
     Dosage: NK
     Route: 065
  4. CARBOPLATIN. [Suspect]
     Active Substance: CARBOPLATIN
     Dosage: NK
     Route: 065
  5. BELOC MITE [Concomitant]
     Dosage: 47.5 MG, 1-0-1-0

REACTIONS (6)
  - Fatigue [Unknown]
  - Diarrhoea [Unknown]
  - Nausea [Unknown]
  - Musculoskeletal pain [Unknown]
  - Dizziness [Unknown]
  - Vomiting [Unknown]
